FAERS Safety Report 5152201-5 (Version None)
Quarter: 2006Q4

REPORT INFORMATION
  Report Type: 
  Country: None (occurrence: None)
  Receive Date: 20061116
  Receipt Date: 20061115
  Transmission Date: 20070319
  Serious: Yes (Other)
  Sender: FDA-Public Use
  Company Number: GB-GLAXOSMITHKLINE-B0446803A

PATIENT
  Age: 70 Year
  Sex: Male

DRUGS (2)
  1. PROCHLORPERAZINE [Suspect]
     Indication: URINARY TRACT INFECTION
     Route: 048
  2. TRIMETHOPRIM [Suspect]
     Route: 048

REACTIONS (1)
  - VASCULITIC RASH [None]
